FAERS Safety Report 5223997-9 (Version None)
Quarter: 2007Q1

REPORT INFORMATION
  Report Type: 
  Country: None (occurrence: None)
  Receive Date: 20070130
  Receipt Date: 20070124
  Transmission Date: 20070707
  Serious: Yes (Other)
  Sender: FDA-Public Use
  Company Number: DE-GLAXOSMITHKLINE-D0052116A

PATIENT
  Age: 77 Year
  Sex: Female

DRUGS (1)
  1. QUILONUM RETARD [Suspect]
     Dosage: 900MG PER DAY
     Route: 048

REACTIONS (3)
  - CONFUSIONAL STATE [None]
  - DRUG LEVEL INCREASED [None]
  - RENAL FAILURE [None]
